FAERS Safety Report 6131948-8 (Version None)
Quarter: 2009Q1

REPORT INFORMATION
  Report Type: 
  Country: None (occurrence: None)
  Receive Date: 20090325
  Receipt Date: 20090323
  Transmission Date: 20090719
  Serious: Yes (Other)
  Sender: FDA-Public Use
  Company Number: FR-WYE-G03373809

PATIENT
  Age: 63 Year
  Sex: Female

DRUGS (2)
  1. TORISEL [Suspect]
     Dosage: UNKNOWN
     Route: 042
     Dates: start: 20090323, end: 20090323
  2. POLARAMINE [Concomitant]
     Indication: PROPHYLAXIS
     Dosage: 5 MG; 30 MINUTES BEFORE THE INFUSION OF TORISEL
     Route: 042
     Dates: start: 20090323, end: 20090323

REACTIONS (4)
  - HYPERSENSITIVITY [None]
  - HYPOTENSION [None]
  - NAUSEA [None]
  - VOMITING [None]
